FAERS Safety Report 21978203 (Version 2)
Quarter: 2024Q1

REPORT INFORMATION
  Report Type: Report from Study
  Country: US (occurrence: US)
  Receive Date: 20230210
  Receipt Date: 20240125
  Transmission Date: 20240409
  Serious: Yes (Hospitalization, Other)
  Sender: FDA-Public Use
  Company Number: US-ABBVIE-4302836

PATIENT
  Age: 69 Year
  Sex: Male
  Weight: 80 kg

DRUGS (20)
  1. VENCLEXTA [Suspect]
     Active Substance: VENETOCLAX
     Indication: Waldenstrom^s macroglobulinaemia
     Dosage: FREQUENCY TEXT: TAKE 8 TABLET(S) DAILY WITH BREAKFAST?FORM STRENGTH WAS 100 MILLIGRAM
     Route: 048
     Dates: start: 202302, end: 20231221
  2. VENCLEXTA [Suspect]
     Active Substance: VENETOCLAX
     Indication: Waldenstrom^s macroglobulinaemia
     Dosage: FREQUENCY TEXT: TAKE 8 TABLET(S) DAILY WITH BREAKFAST?FORM STRENGTH WAS 100 MILLIGRAM
     Route: 048
     Dates: start: 20231223, end: 20231229
  3. VENCLEXTA [Suspect]
     Active Substance: VENETOCLAX
     Indication: Waldenstrom^s macroglobulinaemia
     Dosage: FREQUENCY TEXT: TAKE 8 TABLET(S) DAILY WITH BREAKFAST?FORM STRENGTH WAS 100 MILLIGRAM
     Route: 048
     Dates: start: 20240114, end: 20240114
  4. VENCLEXTA [Suspect]
     Active Substance: VENETOCLAX
     Indication: Waldenstrom^s macroglobulinaemia
     Dosage: FREQUENCY TEXT: TAKE 8 TABLET(S) DAILY WITH BREAKFAST?FORM STRENGTH WAS 100 MILLIGRAM
     Route: 048
     Dates: start: 20240117
  5. RITUXAN [Suspect]
     Active Substance: RITUXIMAB
     Indication: Product used for unknown indication
     Dosage: VIAL-10MGLML (10ML)
     Route: 065
  6. DEPAKOTE [Concomitant]
     Active Substance: DIVALPROEX SODIUM
     Indication: Product used for unknown indication
     Dosage: ER 250 MG 24 HR TABLET
  7. DEPAKOTE [Concomitant]
     Active Substance: DIVALPROEX SODIUM
     Indication: Product used for unknown indication
     Dosage: 500 MG DR TABLET
  8. DIASTAT ACUDIAL [Concomitant]
     Active Substance: DIAZEPAM
     Indication: Product used for unknown indication
  9. PREVIDENT [Concomitant]
     Active Substance: SODIUM FLUORIDE
     Indication: Product used for unknown indication
     Dosage: 5000 BOOSTER PHIS 1.1 % PASTE
  10. AMOXICILLIN [Concomitant]
     Active Substance: AMOXICILLIN
     Indication: Product used for unknown indication
  11. SARNA [Concomitant]
     Active Substance: CAMPHOR (SYNTHETIC)\MENTHOL
     Indication: Product used for unknown indication
     Dosage: 0.5-0.5 % LOTION
  12. MYRBETRIQ [Concomitant]
     Active Substance: MIRABEGRON
     Indication: Product used for unknown indication
     Dosage: ER 25 MG 24 HR TABLET
  13. KLOR-CON [Concomitant]
     Active Substance: POTASSIUM CHLORIDE
     Indication: Product used for unknown indication
     Dosage: ER 20 MEQ ER TABLET
  14. NYAMYC [Concomitant]
     Active Substance: NYSTATIN
     Indication: Product used for unknown indication
     Dosage: 100000 UNIT/GM POWDER
  15. LAMICTAL [Concomitant]
     Active Substance: LAMOTRIGINE
     Indication: Product used for unknown indication
  16. LAMICTAL [Concomitant]
     Active Substance: LAMOTRIGINE
     Indication: Product used for unknown indication
  17. MAGNESIUM [Concomitant]
     Active Substance: MAGNESIUM
     Indication: Product used for unknown indication
  18. VITAMIN D [Concomitant]
     Active Substance: VITAMIN D NOS
     Indication: Product used for unknown indication
  19. LASIX [Concomitant]
     Active Substance: FUROSEMIDE
     Indication: Product used for unknown indication
  20. LACHYDRIN [Concomitant]
     Indication: Product used for unknown indication
     Dosage: 12 % LOTION

REACTIONS (6)
  - Epilepsy [Unknown]
  - Drug hypersensitivity [Unknown]
  - Illness [Unknown]
  - Off label use [Unknown]
  - Escherichia infection [Unknown]
  - Investigation abnormal [Unknown]

NARRATIVE: CASE EVENT DATE: 20231222
